FAERS Safety Report 10947336 (Version 1)
Quarter: 2015Q1

REPORT INFORMATION
  Report Type: Spontaneous
  Country: US (occurrence: None)
  Receive Date: 20150212
  Receipt Date: 20150212
  Transmission Date: 20150721
  Serious: No
  Sender: FDA-Public Use
  Company Number: TPA2012A00437

PATIENT
  Age: 57 Year
  Sex: Male
  Weight: 113.85 kg

DRUGS (9)
  1. COLCRYS [Concomitant]
     Active Substance: COLCHICINE
  2. FUROSEMIDE. [Concomitant]
     Active Substance: FUROSEMIDE
  3. SODIUM BICARBONATE. [Concomitant]
     Active Substance: SODIUM BICARBONATE
  4. ULORIC [Suspect]
     Active Substance: FEBUXOSTAT
     Indication: GOUT
     Dosage: 1 IN 1 DAY
     Route: 048
     Dates: start: 20120118
  5. LISINOPRIL. [Concomitant]
     Active Substance: LISINOPRIL
  6. INSULIN [Concomitant]
     Active Substance: INSULIN NOS
  7. CLONIDINE. [Concomitant]
     Active Substance: CLONIDINE
  8. PREDNISONE. [Concomitant]
     Active Substance: PREDNISONE
  9. VITAMIN D (ERGOCALCIFEROL) [Concomitant]
     Active Substance: ERGOCALCIFEROL

REACTIONS (1)
  - Gout [None]

NARRATIVE: CASE EVENT DATE: 201201
